FAERS Safety Report 14795117 (Version 1)
Quarter: 2018Q2

REPORT INFORMATION
  Report Type: Spontaneous
  Country: US (occurrence: US)
  Receive Date: 20180423
  Receipt Date: 20180423
  Transmission Date: 20180711
  Serious: No
  Sender: FDA-Public Use
  Company Number: US-CARDINAL HEALTH 414-CAHLYMPH-AE-18-2

PATIENT
  Age: 57 Year
  Sex: Female

DRUGS (1)
  1. LYMPHOSEEK [Suspect]
     Active Substance: TECHNETIUM TC-99M TILMANOCEPT
     Indication: LYMPHATIC MAPPING
     Route: 023
     Dates: start: 20180104, end: 20180104

REACTIONS (4)
  - Injection site urticaria [Recovering/Resolving]
  - Drug ineffective [Recovered/Resolved]
  - Off label use [None]
  - Headache [Unknown]

NARRATIVE: CASE EVENT DATE: 20170104
